FAERS Safety Report 5360541-X (Version None)
Quarter: 2007Q2

REPORT INFORMATION
  Report Type: 
  Country: None (occurrence: None)
  Receive Date: 20070612
  Receipt Date: 20070604
  Transmission Date: 20071010
  Serious: Yes (Hospitalization, Other)
  Sender: FDA-Public Use
  Company Number: 23450K07USA

PATIENT
  Age: 47 Year
  Sex: Female
  Weight: 53.5244 kg

DRUGS (3)
  1. REBIF [Suspect]
     Indication: MULTIPLE SCLEROSIS
     Dosage: 44 MCG, 3 IN 1 WEEKS, SUBCUTANEOUS
     Route: 058
     Dates: start: 20070103
  2. LYRICA [Suspect]
     Dates: start: 20060101, end: 20070101
  3. ABILIFY [Concomitant]

REACTIONS (3)
  - ANEURYSM [None]
  - CONVULSION [None]
  - LOSS OF CONSCIOUSNESS [None]
